FAERS Safety Report 18876147 (Version 1)
Quarter: 2021Q1

REPORT INFORMATION
  Report Type: Spontaneous
  Country: DE (occurrence: DE)
  Receive Date: 20210210
  Receipt Date: 20210210
  Transmission Date: 20210420
  Serious: Yes (Other)
  Sender: FDA-Public Use
  Company Number: DE-ALLERGAN-2105690US

PATIENT
  Sex: Female
  Weight: 2.44 kg

DRUGS (4)
  1. NITROFURANTOIN. [Concomitant]
     Active Substance: NITROFURANTOIN
     Indication: EXPOSURE DURING PREGNANCY
     Route: 064
  2. CITALOPRAM HYDROBROMIDE ? BP [Suspect]
     Active Substance: CITALOPRAM HYDROBROMIDE
     Indication: EXPOSURE DURING PREGNANCY
     Dosage: 40 MG, QD
     Route: 064
     Dates: start: 20190928, end: 20200707
  3. L?THYROXIN [Concomitant]
     Active Substance: LEVOTHYROXINE SODIUM
     Indication: EXPOSURE DURING PREGNANCY
     Dosage: 75 ?G, QD
     Route: 064
     Dates: start: 20190928, end: 20200707
  4. LEVODOPA BENSERAZIDE [Concomitant]
     Active Substance: BENSERAZIDE\LEVODOPA
     Indication: EXPOSURE DURING PREGNANCY
     Dosage: 100 [MG/D ] / 25 [MG/D ]
     Route: 064

REACTIONS (2)
  - Small for dates baby [Unknown]
  - Pregnancy [Unknown]

NARRATIVE: CASE EVENT DATE: 20200707
